FAERS Safety Report 4686611-7 (Version None)
Quarter: 2005Q2

REPORT INFORMATION
  Report Type: 
  Country: None (occurrence: None)
  Receive Date: 20050609
  Receipt Date: 20050531
  Transmission Date: 20051028
  Serious: Yes (Hospitalization)
  Sender: FDA-Public Use
  Company Number: FR-BRISTOL-MYERS SQUIBB COMPANY-12989638

PATIENT
  Age: 34 Year
  Sex: Female

DRUGS (1)
  1. MUCOMYST [Suspect]
     Indication: NASOPHARYNGITIS
     Route: 048

REACTIONS (4)
  - ANAPHYLACTIC REACTION [None]
  - BLOOD PRESSURE DECREASED [None]
  - FEELING HOT [None]
  - MALAISE [None]
